FAERS Safety Report 8230728-7 (Version None)
Quarter: 2012Q1

REPORT INFORMATION
  Report Type: 
  Country: None (occurrence: None)
  Receive Date: 20120323
  Receipt Date: 20120317
  Transmission Date: 20120608
  Serious: Yes (Hospitalization, Other)
  Sender: FDA-Public Use
  Company Number: US-JNJFOC-20120308569

PATIENT
  Sex: Female
  Weight: 63.5 kg

DRUGS (3)
  1. DOXORUBICIN HCL [Suspect]
     Indication: DESMOID TUMOUR
     Route: 042
     Dates: start: 20081001, end: 20090101
  2. DOXORUBICIN HCL [Suspect]
     Indication: CARCINOID SYNDROME
     Route: 042
     Dates: start: 20081001, end: 20090101
  3. DOXORUBICIN HCL [Suspect]
     Indication: ADENOMATOUS POLYPOSIS COLI
     Route: 042
     Dates: start: 20081001, end: 20090101

REACTIONS (16)
  - BRONCHITIS CHRONIC [None]
  - HYPOTONIA [None]
  - FEELING ABNORMAL [None]
  - FATIGUE [None]
  - ABNORMAL LOSS OF WEIGHT [None]
  - PYREXIA [None]
  - PNEUMONIA [None]
  - WEIGHT INCREASED [None]
  - ABASIA [None]
  - ADVERSE DRUG REACTION [None]
  - STICKY SKIN [None]
  - PAIN [None]
  - LOWER EXTREMITY MASS [None]
  - DRUG INEFFECTIVE FOR UNAPPROVED INDICATION [None]
  - INTESTINAL OBSTRUCTION [None]
  - DACRYOSTENOSIS ACQUIRED [None]
